FAERS Safety Report 17881365 (Version 3)
Quarter: 2020Q4

REPORT INFORMATION
  Report Type: Report from Study
  Country: US (occurrence: US)
  Receive Date: 20200610
  Receipt Date: 20201207
  Transmission Date: 20210113
  Serious: Yes (Hospitalization, Other)
  Sender: FDA-Public Use
  Company Number: US-ASTELLAS-2019US034486

PATIENT
  Age: 86 Year
  Sex: Male

DRUGS (3)
  1. ENZALUTAMIDE [Suspect]
     Active Substance: ENZALUTAMIDE
     Route: 048
  2. ENZALUTAMIDE [Suspect]
     Active Substance: ENZALUTAMIDE
     Indication: PROSTATE CANCER
     Route: 048
     Dates: start: 20190731
  3. ENZALUTAMIDE [Suspect]
     Active Substance: ENZALUTAMIDE
     Route: 048

REACTIONS (12)
  - Loss of control of legs [Recovering/Resolving]
  - Fall [Recovering/Resolving]
  - Fatigue [Unknown]
  - Back injury [Recovering/Resolving]
  - Blood pressure fluctuation [Not Recovered/Not Resolved]
  - Muscular weakness [Unknown]
  - Hypoaesthesia [Recovering/Resolving]
  - Renal disorder [Not Recovered/Not Resolved]
  - Blood pressure increased [Not Recovered/Not Resolved]
  - Sluggishness [Unknown]
  - Condition aggravated [Recovering/Resolving]
  - Headache [Not Recovered/Not Resolved]

NARRATIVE: CASE EVENT DATE: 202005
